FAERS Safety Report 4950466-3 (Version None)
Quarter: 2006Q1

REPORT INFORMATION
  Report Type: 
  Country: None (occurrence: None)
  Receive Date: 20060322
  Receipt Date: 20050705
  Transmission Date: 20060701
  Serious: Yes (Hospitalization)
  Sender: FDA-Public Use
  Company Number: DE-SOLVAY-00305002526

PATIENT
  Age: 484 Month
  Sex: Female
  Weight: 67 kg

DRUGS (11)
  1. METOCLOPRAMIDE [Concomitant]
     Indication: ANOREXIA
     Dosage: DAILY DOSE:  UNKNOWN
     Route: 048
  2. KREON 40000 [Suspect]
     Indication: PANCREATITIS CHRONIC
     Dosage: DAILY DOSE:  UNKNOWN
     Route: 048
     Dates: start: 20050201, end: 20050101
  3. KREON 40000 [Suspect]
     Dosage: DAILY DOSE:  UNKNOWN
     Route: 048
     Dates: start: 20050101, end: 20050501
  4. NOVORAPID [Concomitant]
     Indication: DIABETES MELLITUS
     Route: 058
  5. LANTUS [Concomitant]
     Indication: DIABETES MELLITUS
     Route: 058
  6. PROVASC 160/12,5 COMP [Concomitant]
     Indication: HYPERTENSION
     Route: 048
     Dates: start: 20041125
  7. CORIFEO 20 MG [Concomitant]
     Indication: HYPERTENSION
     Dosage: DAILY DOSE:  UNKNOWN
     Route: 048
  8. L-THYROX 125 [Concomitant]
     Indication: HYPOTHYROIDISM
     Dosage: DAILY DOSE:  UNKNOWN
     Route: 048
  9. DUSPATAL [Concomitant]
     Indication: IRRITABLE BOWEL SYNDROME
     Dosage: DAILY DOSE:  UNKNOWN
     Route: 065
  10. SALOFALK KLYSMEN [Concomitant]
     Indication: COLITIS
     Dosage: DAILY DOSE:  UNKNOWN
     Route: 054
  11. NEXIUM [Concomitant]
     Indication: GASTRIC ULCER
     Dosage: DAILY DOSE:  UNKNOWN
     Route: 048

REACTIONS (12)
  - ABDOMINAL DISTENSION [None]
  - COLITIS [None]
  - ENTEROCOLITIS INFECTIOUS [None]
  - FALL [None]
  - FATIGUE [None]
  - GOITRE [None]
  - HYPERTENSION [None]
  - INSULIN-REQUIRING TYPE II DIABETES MELLITUS [None]
  - LACTOSE INTOLERANCE [None]
  - ORAL INTAKE REDUCED [None]
  - PULMONARY EMBOLISM [None]
  - REFLUX OESOPHAGITIS [None]
